FAERS Safety Report 5027480-5 (Version None)
Quarter: 2006Q2

REPORT INFORMATION
  Report Type: 
  Country: None (occurrence: None)
  Receive Date: 20060501
  Receipt Date: 20051213
  Transmission Date: 20061013
  Serious: No
  Sender: FDA-Public Use
  Company Number: 2005PV005806

PATIENT
  Age: 45 Year
  Sex: Female
  Weight: 127.0072 kg

DRUGS (2)
  1. SYMLIN [Suspect]
     Indication: DIABETES MELLITUS INSULIN-DEPENDENT
     Dosage: BID, SC
     Route: 058
     Dates: start: 20051001
  2. REGULAR INSULIN [Concomitant]

REACTIONS (1)
  - INJECTION SITE URTICARIA [None]
